FAERS Safety Report 14861644 (Version 1)
Quarter: 2018Q2

REPORT INFORMATION
  Report Type: Spontaneous
  Country: US (occurrence: US)
  Receive Date: 20180508
  Receipt Date: 20180508
  Transmission Date: 20180711
  Serious: No
  Sender: FDA-Public Use
  Company Number: US-VIFOR (INTERNATIONAL) INC.-VIT-2018-00178

PATIENT
  Age: 77 Year
  Sex: Male

DRUGS (8)
  1. VELTASSA [Suspect]
     Active Substance: PATIROMER
     Indication: HYPERKALAEMIA
     Route: 048
     Dates: start: 20160428
  2. CARVEDILOL. [Concomitant]
     Active Substance: CARVEDILOL
  3. AMLODIPINE BESILATE [Concomitant]
     Active Substance: AMLODIPINE BESYLATE
  4. ADVIL [Concomitant]
     Active Substance: IBUPROFEN
  5. WARFARIN SODIUM. [Concomitant]
     Active Substance: WARFARIN SODIUM
  6. ERGOCALCIFEROL~~ASCORBIC ACID~~PYRIDOXINE HYDROCHLORIDE~~THIAMINE HYDROCHLORIDE~~RETINOL~~RIBOFLAVIN [Concomitant]
  7. KIONEX [Concomitant]
     Active Substance: SODIUM POLYSTYRENE SULFONATE
  8. LEVOFLOXACIN. [Concomitant]
     Active Substance: LEVOFLOXACIN

REACTIONS (2)
  - Gastritis [Unknown]
  - Diverticulum [Unknown]

NARRATIVE: CASE EVENT DATE: 20171230
